FAERS Safety Report 5061912-1 (Version None)
Quarter: 2006Q3

REPORT INFORMATION
  Report Type: 
  Country: None (occurrence: None)
  Receive Date: 20060720
  Receipt Date: 20060720
  Transmission Date: 20061208
  Serious: Yes (Death)
  Sender: FDA-Public Use
  Company Number: None

PATIENT
  Sex: Male

DRUGS (1)
  1. CEFEPIME [Suspect]

REACTIONS (2)
  - DRUG ADMINISTRATION ERROR [None]
  - DRUG DOSE OMISSION [None]
